FAERS Safety Report 24247259 (Version 1)
Quarter: 2024Q3

REPORT INFORMATION
  Report Type: Spontaneous
  Country: US (occurrence: US)
  Receive Date: 20240826
  Receipt Date: 20240826
  Transmission Date: 20241016
  Serious: Yes (Hospitalization, Other)
  Sender: BRISTOL MYERS SQUIBB
  Company Number: US-BRISTOL-MYERS SQUIBB COMPANY-2024-133192

PATIENT
  Age: 80 Year
  Sex: Male
  Weight: 65.77 kg

DRUGS (4)
  1. ELIQUIS [Suspect]
     Active Substance: APIXABAN
     Indication: Atrial fibrillation
     Dates: end: 20240730
  2. HYDROXYUREA [Concomitant]
     Active Substance: HYDROXYUREA
     Indication: Platelet disorder
     Dates: start: 20240712, end: 202408
  3. NYSTATIN [Concomitant]
     Active Substance: NYSTATIN
     Indication: Product used for unknown indication
  4. MORNIFLUMATE [Concomitant]
     Active Substance: MORNIFLUMATE
     Indication: Product used for unknown indication

REACTIONS (4)
  - Joint injury [Unknown]
  - Haematoma [Not Recovered/Not Resolved]
  - Haemorrhage [Unknown]
  - Muscle rupture [Unknown]

NARRATIVE: CASE EVENT DATE: 20240101
